FAERS Safety Report 14435862 (Version 1)
Quarter: 2018Q1

REPORT INFORMATION
  Report Type: Spontaneous
  Country: DE (occurrence: DE)
  Receive Date: 20180125
  Receipt Date: 20180125
  Transmission Date: 20180509
  Serious: Yes (Other)
  Sender: FDA-Public Use
  Company Number: DE-ACCORD-062943

PATIENT
  Age: 52 Year
  Sex: Female
  Weight: 79 kg

DRUGS (7)
  1. CLOPIDOGREL [Concomitant]
     Active Substance: CLOPIDOGREL BISULFATE
     Indication: ARTERIOSCLEROSIS
     Dosage: 75 MG, QD
     Route: 048
  2. PANTOZOL [Concomitant]
     Active Substance: PANTOPRAZOLE SODIUM
     Indication: PROPHYLAXIS
     Dosage: 40 MG, QD
     Route: 048
  3. SIMVASTATIN. [Suspect]
     Active Substance: SIMVASTATIN
     Indication: HYPERLIPIDAEMIA
     Route: 048
  4. BEZAFIBRATE [Suspect]
     Active Substance: BEZAFIBRATE
     Indication: PRODUCT USED FOR UNKNOWN INDICATION
  5. ATORVASTATIN/ATORVASTATIN CALCIUM [Suspect]
     Active Substance: ATORVASTATIN CALCIUM
     Indication: HYPERLIPIDAEMIA
  6. ACETYLSALICYLIC ACID [Concomitant]
     Active Substance: ASPIRIN
     Indication: ARTERIOSCLEROSIS
     Dosage: 100 MG, QD
     Route: 048
  7. EZETIMIBE MSD-SP [Concomitant]
     Active Substance: EZETIMIBE
     Indication: HYPERLIPIDAEMIA
     Dosage: STRENGTH: 10 MG

REACTIONS (22)
  - Vascular stent stenosis [Unknown]
  - Hypertension [Unknown]
  - Arterial occlusive disease [None]
  - Joint swelling [Recovered/Resolved]
  - Pyrexia [None]
  - Peripheral artery thrombosis [None]
  - Urine albumin/creatinine ratio decreased [None]
  - Total cholesterol/HDL ratio increased [None]
  - Serum ferritin decreased [None]
  - Helicobacter gastritis [Unknown]
  - Carotid arteriosclerosis [Unknown]
  - Acute coronary syndrome [Unknown]
  - Acute myocardial infarction [Unknown]
  - Lipoprotein (a) increased [None]
  - Coronary artery thrombosis [Unknown]
  - Drug intolerance [Unknown]
  - Peripheral artery occlusion [None]
  - Back pain [None]
  - Diverticular perforation [Unknown]
  - Hepatic cyst [Unknown]
  - Arterial stenosis [None]
  - Low density lipoprotein increased [None]

NARRATIVE: CASE EVENT DATE: 20110929
